FAERS Safety Report 8381836-1 (Version None)
Quarter: 2012Q2

REPORT INFORMATION
  Report Type: 
  Country: None (occurrence: None)
  Receive Date: 20120522
  Receipt Date: 20120522
  Transmission Date: 20120825
  Serious: Yes (Other)
  Sender: FDA-Public Use
  Company Number: None

PATIENT
  Age: 90 Year
  Sex: Female
  Weight: 86.1834 kg

DRUGS (1)
  1. CIPROFLOXACIN [Suspect]
     Indication: URINARY TRACT INFECTION
     Dosage: ONE DOSE ONLY
     Dates: start: 20120517, end: 20120517

REACTIONS (2)
  - INSOMNIA [None]
  - TINNITUS [None]
